FAERS Safety Report 15613815 (Version 1)
Quarter: 2018Q4

REPORT INFORMATION
  Report Type: Report from Study
  Country: CA (occurrence: CA)
  Receive Date: 20181113
  Receipt Date: 20181113
  Transmission Date: 20190205
  Serious: Yes (Hospitalization, Other)
  Sender: FDA-Public Use
  Company Number: CA-PFIZER INC-2018462881

PATIENT
  Age: 58 Year
  Sex: Female
  Weight: 89 kg

DRUGS (26)
  1. REMICADE [Suspect]
     Active Substance: INFLIXIMAB
     Indication: ARTHRITIS
     Dosage: 500 MG,1 EVERY 8 WEEK (S)
     Route: 042
  2. REMICADE [Suspect]
     Active Substance: INFLIXIMAB
     Dosage: 600 MG,1 EVERY 4 WEEK (S)
     Route: 042
  3. REMICADE [Suspect]
     Active Substance: INFLIXIMAB
     Dosage: 600 MG,1 EVERY 4 WEEK (S)
     Route: 042
  4. BUDESONIDE/FORMOTEROL FUMARATE [Concomitant]
     Dosage: UNK
     Route: 065
  5. REMICADE [Suspect]
     Active Substance: INFLIXIMAB
     Dosage: 500 MG,1 EVERY 4 WEEK (S)
     Route: 042
  6. REMICADE [Suspect]
     Active Substance: INFLIXIMAB
     Dosage: 500 MG,1 EVERY 8 WEEK (S)
     Route: 042
  7. OMEGA 3 [FISH OIL] [Concomitant]
     Dosage: UNK
     Route: 065
  8. REMICADE [Suspect]
     Active Substance: INFLIXIMAB
     Dosage: 500 MG,1 EVERY 4 WEEK (S)
     Route: 042
  9. ASACOL [Concomitant]
     Active Substance: MESALAMINE
     Dosage: UNK
     Route: 065
  10. REMICADE [Suspect]
     Active Substance: INFLIXIMAB
     Indication: CROHN^S DISEASE
     Dosage: 500 MG,1 EVERY 8 WEEK (S)
     Route: 042
  11. REMICADE [Suspect]
     Active Substance: INFLIXIMAB
     Dosage: 600 MG,1 EVERY 4 WEEK (S)
     Route: 042
  12. REMICADE [Suspect]
     Active Substance: INFLIXIMAB
     Dosage: 500 MG,1 EVERY 8 WEEK (S)
     Route: 042
  13. ELTROXIN [Concomitant]
     Active Substance: LEVOTHYROXINE
     Dosage: UNK
     Route: 065
  14. PREDNISONE. [Concomitant]
     Active Substance: PREDNISONE
     Dosage: UNK
     Route: 065
  15. VENTOLINE [SALBUTAMOL] [Concomitant]
     Active Substance: ALBUTEROL SULFATE
     Dosage: UNK
     Route: 065
  16. METHOTREXATE SODIUM. [Suspect]
     Active Substance: METHOTREXATE SODIUM
     Indication: PRODUCT USED FOR UNKNOWN INDICATION
     Dosage: UNK
     Route: 065
  17. METHOTREXATE SODIUM. [Suspect]
     Active Substance: METHOTREXATE SODIUM
     Dosage: UNK, WEEKLY
     Route: 065
  18. PREDNISONE. [Concomitant]
     Active Substance: PREDNISONE
     Dosage: UNK, 8 EVERY 1 DAY (S)
     Route: 065
  19. REMICADE [Suspect]
     Active Substance: INFLIXIMAB
     Dosage: 500 MG,1 EVERY 4 WEEK (S)
     Route: 042
  20. REMICADE [Suspect]
     Active Substance: INFLIXIMAB
     Dosage: 600 MG,1 EVERY 4 WEEK (S)
     Route: 042
  21. REMICADE [Suspect]
     Active Substance: INFLIXIMAB
     Dosage: 600 MG,1 EVERY 4 WEEK (S)
     Route: 042
  22. FOLIC ACID. [Concomitant]
     Active Substance: FOLIC ACID
     Dosage: UNK
     Route: 065
  23. REMICADE [Suspect]
     Active Substance: INFLIXIMAB
     Indication: COLITIS ULCERATIVE
     Dosage: 600 MG,1 EVERY 4 WEEK (S)
     Route: 042
  24. REMICADE [Suspect]
     Active Substance: INFLIXIMAB
     Dosage: 500 MG,1 EVERY 8 WEEK (S)
     Route: 042
  25. REMICADE [Suspect]
     Active Substance: INFLIXIMAB
     Dosage: 500 MG,1 EVERY 8 WEEK (S)
     Route: 042
  26. IMURAN [Concomitant]
     Active Substance: AZATHIOPRINE
     Dosage: UNK
     Route: 065

REACTIONS (13)
  - Nausea [Not Recovered/Not Resolved]
  - Visual impairment [Not Recovered/Not Resolved]
  - Diarrhoea [Not Recovered/Not Resolved]
  - Eye ulcer [Not Recovered/Not Resolved]
  - Drug ineffective [Not Recovered/Not Resolved]
  - Abdominal pain [Not Recovered/Not Resolved]
  - Haemorrhoidal haemorrhage [Not Recovered/Not Resolved]
  - White blood cell count increased [Not Recovered/Not Resolved]
  - Herpes ophthalmic [Not Recovered/Not Resolved]
  - Large intestinal ulcer [Not Recovered/Not Resolved]
  - Diarrhoea haemorrhagic [Not Recovered/Not Resolved]
  - Fatigue [Not Recovered/Not Resolved]
  - Haemoglobin decreased [Not Recovered/Not Resolved]
